FAERS Safety Report 11724756 (Version 2)
Quarter: 2016Q1

REPORT INFORMATION
  Report Type: Report from Study
  Country: US (occurrence: US)
  Receive Date: 20151111
  Receipt Date: 20160121
  Transmission Date: 20160525
  Serious: Yes (Other)
  Sender: FDA-Public Use
  Company Number: US-UCBSA-2014000662

PATIENT
  Age: 37 Year
  Sex: Female

DRUGS (7)
  1. LACOSAMIDE [Suspect]
     Active Substance: LACOSAMIDE
     Dosage: UNKNOWN DECREASED DOSE
     Dates: start: 201309, end: 201310
  2. LACOSAMIDE [Suspect]
     Active Substance: LACOSAMIDE
     Dosage: UNK, UNKNOWN INCREASED DOSE
  3. LACOSAMIDE [Suspect]
     Active Substance: LACOSAMIDE
     Dosage: UNK, 50 MG/3.5 DAY
  4. VENLAFAXINE [Concomitant]
     Active Substance: VENLAFAXINE HYDROCHLORIDE
     Indication: PRODUCT USED FOR UNKNOWN INDICATION
     Dosage: UNK
  5. LYRICA [Concomitant]
     Active Substance: PREGABALIN
     Indication: PRODUCT USED FOR UNKNOWN INDICATION
     Dosage: UNK
  6. LACOSAMIDE [Suspect]
     Active Substance: LACOSAMIDE
     Indication: SEIZURE
     Dosage: UNK
  7. LACOSAMIDE [Suspect]
     Active Substance: LACOSAMIDE
     Dosage: UNK, PUT BACK ON THE LEVEL OF MEDICATION SHE WAS ON BEFORE
     Dates: start: 201310

REACTIONS (7)
  - Fatigue [Unknown]
  - Somnolence [Unknown]
  - Crying [Unknown]
  - Seizure [Unknown]
  - Ear disorder [Unknown]
  - Skin disorder [Unknown]
  - Depression [Unknown]

NARRATIVE: CASE EVENT DATE: 201112
